FAERS Safety Report 7770052-X (Version None)
Quarter: 2011Q3

REPORT INFORMATION
  Report Type: 
  Country: None (occurrence: None)
  Receive Date: 20110922
  Receipt Date: 20110307
  Transmission Date: 20111222
  Serious: No
  Sender: FDA-Public Use
  Company Number: US-ASTRAZENECA-2011SE12408

PATIENT
  Age: 25 Year
  Sex: Female

DRUGS (16)
  1. SEROQUEL XR [Suspect]
     Route: 048
     Dates: start: 20110217, end: 20110219
  2. SEROQUEL XR [Suspect]
     Route: 048
     Dates: start: 20110219
  3. LEXAPRO [Suspect]
     Route: 048
     Dates: start: 20110217
  4. LEXAPRO [Suspect]
     Indication: DEPRESSION
     Route: 048
     Dates: start: 20110215, end: 20110215
  5. SEROQUEL XR [Suspect]
     Indication: ANXIETY
     Route: 048
     Dates: start: 20110215, end: 20110215
  6. SEROQUEL XR [Suspect]
     Route: 048
     Dates: start: 20110217, end: 20110219
  7. SEROQUEL XR [Suspect]
     Indication: DEPRESSION
     Route: 048
     Dates: start: 20110215, end: 20110215
  8. VICODIN HP [Concomitant]
     Indication: ENDOMETRIOSIS
     Dosage: 10/660MG AS REQUIRED
     Route: 048
  9. MOTRIN [Concomitant]
     Indication: ENDOMETRIOSIS
     Route: 048
  10. LEXAPRO [Suspect]
     Route: 048
     Dates: start: 20110217
  11. SEROQUEL XR [Suspect]
     Route: 048
     Dates: start: 20110219
  12. LEXAPRO [Suspect]
     Indication: ANXIETY
     Route: 048
     Dates: start: 20110215, end: 20110215
  13. ADDERALL 5 [Concomitant]
     Indication: ATTENTION DEFICIT/HYPERACTIVITY DISORDER
     Dosage: TWO TABLETS A DAY
     Route: 048
  14. DEPO-PROVERA [Concomitant]
     Indication: CONTRACEPTION
     Dosage: ONE IN THREE MONTHS
     Route: 030
  15. XANAX [Concomitant]
     Indication: ANXIETY
     Dosage: THREE TABLETS A DAY
     Route: 048
  16. METHADONE HCL [Concomitant]
     Indication: DRUG ABUSE
     Route: 048

REACTIONS (4)
  - SOMNOLENCE [None]
  - DISORIENTATION [None]
  - FATIGUE [None]
  - CONFUSIONAL STATE [None]
